FAERS Safety Report 16574900 (Version 1)
Quarter: 2019Q3

REPORT INFORMATION
  Report Type: Spontaneous
  Country: FR (occurrence: FR)
  Receive Date: 20190715
  Receipt Date: 20190715
  Transmission Date: 20191004
  Serious: Yes (Hospitalization)
  Sender: FDA-Public Use
  Company Number: PHHY2019FR159461

PATIENT
  Age: 72 Year
  Sex: Female
  Weight: 84 kg

DRUGS (12)
  1. BACTRIM [Suspect]
     Active Substance: SULFAMETHOXAZOLE\TRIMETHOPRIM
     Indication: PROPHYLAXIS
     Dosage: 3 DF, UNK (1 WEEK)
     Route: 065
     Dates: start: 20190123, end: 20190304
  2. SOLUPRED [Concomitant]
     Indication: NODAL MARGINAL ZONE B-CELL LYMPHOMA STAGE IV
     Dosage: 450 MG, UNK (45MGX2 DE J1 A J5 )
     Route: 048
  3. TELMISARTAN. [Concomitant]
     Active Substance: TELMISARTAN
     Indication: PRODUCT USED FOR UNKNOWN INDICATION
     Dosage: 80 MG, QD
     Route: 048
     Dates: end: 20190301
  4. AMOXICILLIN. [Suspect]
     Active Substance: AMOXICILLIN
     Indication: PYREXIA
     Dosage: UNK (INCONNUE)
     Route: 048
  5. CLARITHROMYCIN. [Suspect]
     Active Substance: CLARITHROMYCIN
     Indication: PYREXIA
     Dosage: UNK
     Route: 048
  6. LEDERFOLINE [Suspect]
     Active Substance: LEUCOVORIN CALCIUM
     Indication: PROPHYLAXIS
     Dosage: 1 DF, UNK (1 SECOND)
     Route: 048
  7. RULID [Suspect]
     Active Substance: ROXITHROMYCIN
     Indication: FEBRILE NEUTROPENIA
     Dosage: UNK (INCONNUE)
     Route: 048
  8. ALLOPURINOL. [Suspect]
     Active Substance: ALLOPURINOL
     Indication: PROPHYLAXIS
     Dosage: 300 MG, QD
     Route: 048
     Dates: start: 20190123, end: 20190203
  9. UVEDOSE [Concomitant]
     Active Substance: CHOLECALCIFEROL
     Indication: VITAMIN SUPPLEMENTATION
     Dosage: 1 DF, UNK (3 MONTH)
     Route: 048
     Dates: end: 20190301
  10. ENDOXAN [Concomitant]
     Active Substance: CYCLOPHOSPHAMIDE
     Indication: NODAL MARGINAL ZONE B-CELL LYMPHOMA STAGE IV
     Dosage: 1420 MG, CYCLIC
     Route: 041
     Dates: start: 20190122, end: 20190122
  11. KARDEGIC [Concomitant]
     Active Substance: ASPIRIN DL-LYSINE
     Indication: PRODUCT USED FOR UNKNOWN INDICATION
     Dosage: 1 DF, QD
     Route: 048
     Dates: end: 20190301
  12. ELDISINE [Concomitant]
     Active Substance: VINDESINE SULFATE
     Indication: NODAL MARGINAL ZONE B-CELL LYMPHOMA STAGE IV
     Dosage: 5.7 MG, CYCLIC
     Route: 041
     Dates: start: 20190122, end: 20190122

REACTIONS (3)
  - Rash maculo-papular [Recovered/Resolved]
  - Eosinophilia [Recovered/Resolved]
  - Oedema peripheral [Recovered/Resolved]

NARRATIVE: CASE EVENT DATE: 20190217
